FAERS Safety Report 17478739 (Version 1)
Quarter: 2020Q1

REPORT INFORMATION
  Report Type: Spontaneous
  Country: US (occurrence: US)
  Receive Date: 20200228
  Receipt Date: 20200228
  Transmission Date: 20200409
  Serious: Yes (Other)
  Sender: FDA-Public Use
  Company Number: US-BAYER-2020-033124

PATIENT

DRUGS (2)
  1. ELIQUIS [Interacting]
     Active Substance: APIXABAN
     Indication: DEEP VEIN THROMBOSIS
     Dosage: 5 MG, BID
     Route: 048
  2. BAYER LOW DOSE [Suspect]
     Active Substance: ASPIRIN
     Indication: BLOOD CREATININE INCREASED
     Dosage: 81 MG, UNK
     Route: 048

REACTIONS (3)
  - Labelled drug-drug interaction medication error [None]
  - Product use in unapproved indication [None]
  - Gastrointestinal haemorrhage [Unknown]
